FAERS Safety Report 7091055-7 (Version None)
Quarter: 2010Q4

REPORT INFORMATION
  Report Type: 
  Country: None (occurrence: None)
  Receive Date: 20101109
  Receipt Date: 20101026
  Transmission Date: 20110411
  Serious: Yes (Hospitalization, Other)
  Sender: FDA-Public Use
  Company Number: PHHY2010FR73116

PATIENT
  Sex: Female

DRUGS (9)
  1. EXELON [Suspect]
     Indication: DEMENTIA ALZHEIMER'S TYPE
     Dosage: 9.5 MG PER 24 HR
     Route: 062
     Dates: start: 20100701
  2. SINTROM [Interacting]
     Dosage: 1 DF, QD
     Dates: start: 19930101, end: 20100927
  3. CERIS [Concomitant]
     Dosage: 1 DF, BID
  4. RISPERDAL [Concomitant]
     Dosage: 1.25 DF, QD
  5. CONTRAMAL LP [Concomitant]
     Dosage: 100 MG, BID
     Dates: start: 20080101
  6. EQUANIL [Concomitant]
     Dosage: 400 MG, QD
  7. DAFALGAN [Concomitant]
     Dosage: 1 DF, QID
  8. LEVOTHYROXINE SODIUM [Concomitant]
     Dosage: 75 UG, QD
  9. NORSET [Concomitant]
     Dosage: 15 MG, QD
     Dates: start: 20100913

REACTIONS (5)
  - ANAEMIA [None]
  - BLOOD PRESSURE DIASTOLIC DECREASED [None]
  - DRUG INTERACTION [None]
  - HAEMATOMA [None]
  - INTERNATIONAL NORMALISED RATIO INCREASED [None]
